FAERS Safety Report 23444763 (Version 1)
Quarter: 2024Q1

REPORT INFORMATION
  Report Type: Spontaneous
  Country: CH (occurrence: CH)
  Receive Date: 20240125
  Receipt Date: 20240125
  Transmission Date: 20240410
  Serious: Yes (Hospitalization)
  Sender: FDA-Public Use
  Company Number: None

PATIENT
  Age: 78 Year
  Sex: Female

DRUGS (13)
  1. OLUMIANT [Suspect]
     Active Substance: BARICITINIB
     Indication: Rheumatic fever
     Dosage: 4 MG, UNKNOWN
     Route: 048
  2. OLUMIANT [Suspect]
     Active Substance: BARICITINIB
     Indication: Rheumatoid arthritis
  3. ARCOXIA [Suspect]
     Active Substance: ETORICOXIB
     Indication: Rheumatic fever
     Dosage: 60 MG, EACH MORNING
     Route: 065
     Dates: end: 20231121
  4. ARCOXIA [Suspect]
     Active Substance: ETORICOXIB
     Indication: Rheumatoid arthritis
  5. PREDNISONE [Concomitant]
     Active Substance: PREDNISONE
     Indication: Rheumatic fever
     Dosage: 5 MG, EACH EVENING
     Route: 065
     Dates: end: 20231119
  6. PREDNISONE [Concomitant]
     Active Substance: PREDNISONE
     Dosage: 2.5 MG, UNKNOWN
     Route: 065
     Dates: start: 20231120
  7. ELIQUIS [Concomitant]
     Active Substance: APIXABAN
     Indication: Cerebrovascular accident
     Dosage: 5 MG, BID
     Route: 065
  8. NALOXONE HYDROCHLORIDE\OXYCODONE HYDROCHLORIDE [Concomitant]
     Active Substance: NALOXONE HYDROCHLORIDE\OXYCODONE HYDROCHLORIDE
     Dosage: 5 MG, UNKNOWN
     Route: 065
  9. NALOXONE HYDROCHLORIDE\OXYCODONE HYDROCHLORIDE [Concomitant]
     Active Substance: NALOXONE HYDROCHLORIDE\OXYCODONE HYDROCHLORIDE
     Dosage: 2.5 MG, BID
     Route: 065
  10. ALENDRONATE [Concomitant]
     Active Substance: ALENDRONATE SODIUM
     Dosage: UNK, UNKNOWN
     Route: 065
  11. CANDESARTAN [Concomitant]
     Active Substance: CANDESARTAN
     Dosage: UNK, UNKNOWN
  12. XALATAN [Concomitant]
     Active Substance: LATANOPROST
     Dosage: UNK, UNKNOWN
     Route: 047
  13. CHOLECALCIFEROL [Concomitant]
     Active Substance: CHOLECALCIFEROL
     Dosage: UNK, UNKNOWN

REACTIONS (3)
  - Cardiac failure chronic [Recovering/Resolving]
  - Cardiac failure [Recovering/Resolving]
  - Cerebrovascular accident [Recovering/Resolving]

NARRATIVE: CASE EVENT DATE: 20230624
